FAERS Safety Report 16708506 (Version 1)
Quarter: 2019Q3

REPORT INFORMATION
  Report Type: Spontaneous
  Country: US (occurrence: US)
  Receive Date: 20190816
  Receipt Date: 20190816
  Transmission Date: 20191004
  Serious: Yes (Other)
  Sender: FDA-Public Use
  Company Number: US-APOTEX-2019AP020445

PATIENT
  Age: 35 Month
  Sex: Male

DRUGS (3)
  1. MELPHALAN. [Suspect]
     Active Substance: MELPHALAN
     Dosage: 20 ?G, (INTRAVITREAL)
     Route: 065
  2. MELPHALAN. [Suspect]
     Active Substance: MELPHALAN
     Indication: RETINOBLASTOMA
     Dosage: 5 MG, (3 APPLICATIONS OF IAC AND 9 INTRAVITREAL INJECTION IN 7 MONTHS)
     Route: 013
  3. TOPOTECAN [Suspect]
     Active Substance: TOPOTECAN HYDROCHLORIDE
     Indication: RETINOBLASTOMA
     Dosage: 0.4 MG, (3 APPLICATIONS OF IAC AND 9 INTRAVITREAL INJECTION IN 7 MONTHS)
     Route: 013

REACTIONS (2)
  - Serous retinal detachment [Recovered/Resolved]
  - Anaphylactic reaction [Unknown]
